FAERS Safety Report 17811062 (Version 1)
Quarter: 2020Q2

REPORT INFORMATION
  Report Type: Spontaneous
  Country: US (occurrence: US)
  Receive Date: 20200521
  Receipt Date: 20200521
  Transmission Date: 20200714
  Serious: Yes (Hospitalization, Other)
  Sender: FDA-Public Use
  Company Number: US-GLENMARK PHARMACEUTICALS-2020GMK047875

PATIENT
  Age: 62 Year
  Sex: Male

DRUGS (2)
  1. SULFAMETHOXAZOLE/TRIMETHOPRIM [Suspect]
     Active Substance: SULFAMETHOXAZOLE\TRIMETHOPRIM
     Indication: PROPHYLAXIS
     Dosage: UNK
     Route: 065
  2. PREDNISONE. [Concomitant]
     Active Substance: PREDNISONE
     Indication: ACUTE FEBRILE NEUTROPHILIC DERMATOSIS
     Dosage: UNK (HIGH DOSE)
     Route: 065

REACTIONS (10)
  - Microangiopathic haemolytic anaemia [Unknown]
  - Toxicity to various agents [Unknown]
  - Thrombocytopenia [Unknown]
  - Confusional state [Unknown]
  - Acute kidney injury [Unknown]
  - Diarrhoea [Unknown]
  - Chromaturia [Unknown]
  - Anuria [Not Recovered/Not Resolved]
  - Thrombotic microangiopathy [Unknown]
  - Hyperkalaemia [Unknown]
